FAERS Safety Report 25890059 (Version 1)
Quarter: 2025Q4

REPORT INFORMATION
  Report Type: Spontaneous
  Country: CN (occurrence: CN)
  Receive Date: 20251007
  Receipt Date: 20251007
  Transmission Date: 20260117
  Serious: Yes (Other)
  Sender: RANBAXY
  Company Number: CN-SUN PHARMACEUTICAL INDUSTRIES INC-2025R1-530000

PATIENT
  Age: 31 Year
  Sex: Female

DRUGS (1)
  1. CLOBETASOL [Suspect]
     Active Substance: CLOBETASOL
     Indication: Psoriasis
     Dosage: UNK (10 G/VIAL, 20-30 G PER APPLICATION)
     Route: 061

REACTIONS (3)
  - Hypoproteinaemia [Unknown]
  - Cushing^s syndrome [Unknown]
  - Erythrodermic psoriasis [Unknown]
